FAERS Safety Report 8371991-1 (Version None)
Quarter: 2012Q2

REPORT INFORMATION
  Report Type: 
  Country: None (occurrence: None)
  Receive Date: 20120518
  Receipt Date: 20120514
  Transmission Date: 20120825
  Serious: Yes (Other)
  Sender: FDA-Public Use
  Company Number: US-ROCHE-1069291

PATIENT
  Sex: Male
  Weight: 97.61 kg

DRUGS (1)
  1. XELODA [Suspect]
     Indication: GASTRIC CANCER
     Route: 048
     Dates: start: 20120402

REACTIONS (3)
  - NAUSEA [None]
  - TEMPERATURE INTOLERANCE [None]
  - PARAESTHESIA [None]
